FAERS Safety Report 15745865 (Version 1)
Quarter: 2018Q4

REPORT INFORMATION
  Report Type: Spontaneous
  Country: NO (occurrence: NO)
  Receive Date: 20181220
  Receipt Date: 20181220
  Transmission Date: 20190205
  Serious: Yes (Other)
  Sender: FDA-Public Use
  Company Number: NO-AKRON, INC.-2060440

PATIENT
  Age: 80 Year
  Sex: Male

DRUGS (1)
  1. COSOPT [Suspect]
     Active Substance: DORZOLAMIDE HYDROCHLORIDE\TIMOLOL MALEATE
     Indication: EYE OPERATION
     Route: 047
     Dates: start: 20180727

REACTIONS (2)
  - Asthenia [Recovered/Resolved]
  - Myasthenia gravis [Recovered/Resolved]
